FAERS Safety Report 9250250 (Version 2)
Quarter: 2013Q2

REPORT INFORMATION
  Report Type: Spontaneous
  Country: US (occurrence: US)
  Receive Date: 20130424
  Receipt Date: 20130613
  Transmission Date: 20140414
  Serious: Yes (Other)
  Sender: FDA-Public Use
  Company Number: US-ASTRAZENECA-2013SE27327

PATIENT
  Age: 37 Year
  Sex: Male
  Weight: 104.3 kg

DRUGS (9)
  1. NEXIUM [Suspect]
     Indication: GASTROOESOPHAGEAL REFLUX DISEASE
     Route: 048
     Dates: start: 200710, end: 2010
  2. ALPRAZOLAM [Concomitant]
     Indication: FEELING OF RELAXATION
  3. ALPRAZOLAM [Concomitant]
     Indication: INSOMNIA
  4. VICODIN [Concomitant]
     Indication: PAIN
  5. TYLENOL [Concomitant]
  6. UNISON [Concomitant]
     Indication: INSOMNIA
  7. TUMS [Concomitant]
  8. PEPTO BISMOL [Concomitant]
  9. ALKASELTZER [Concomitant]

REACTIONS (6)
  - Osteonecrosis [Unknown]
  - Pelvic neoplasm [Unknown]
  - Osteoporosis [Unknown]
  - Bone disorder [Unknown]
  - Multiple fractures [Unknown]
  - Discomfort [Unknown]
